FAERS Safety Report 9734419 (Version 2)
Quarter: 2013Q4

REPORT INFORMATION
  Report Type: Spontaneous
  Country: GB (occurrence: GB)
  Receive Date: 20131206
  Receipt Date: 20131210
  Transmission Date: 20140711
  Serious: Yes (Other)
  Sender: FDA-Public Use
  Company Number: PHFR2013GB006819

PATIENT
  Age: 73 Year
  Sex: Male

DRUGS (3)
  1. CUBICIN [Suspect]
     Indication: ARTHRITIS INFECTIVE
     Dates: start: 20130715
  2. CUBICIN [Suspect]
     Indication: OFF LABEL USE
  3. RIFAMPICIN [Suspect]

REACTIONS (5)
  - Eosinophilic pneumonia acute [Recovered/Resolved]
  - Dyspnoea [Unknown]
  - Hypoxia [Unknown]
  - Cough [Unknown]
  - Pyrexia [Unknown]
